FAERS Safety Report 26110501 (Version 1)
Quarter: 2025Q4

REPORT INFORMATION
  Report Type: Report from Study
  Country: US (occurrence: US)
  Receive Date: 20251202
  Receipt Date: 20251202
  Transmission Date: 20260117
  Serious: Yes (Other)
  Sender: ALEXION PHARMACEUTICALS
  Company Number: US-AstraZeneca-CH-01003575A

PATIENT
  Sex: Female

DRUGS (1)
  1. OLAPARIB [Suspect]
     Active Substance: OLAPARIB
     Indication: Endometrial disorder
     Dosage: 300 MILLIGRAM, BID

REACTIONS (3)
  - Fatigue [Unknown]
  - Haemoglobin decreased [Unknown]
  - Intestinal obstruction [Unknown]
